FAERS Safety Report 9114325 (Version 1)
Quarter: 2013Q1

REPORT INFORMATION
  Report Type: Spontaneous
  Country: US (occurrence: None)
  Receive Date: 20130220
  Receipt Date: 20130220
  Transmission Date: 20140127
  Serious: Yes (Other)
  Sender: FDA-Public Use
  Company Number: None

PATIENT
  Age: 64 Year
  Sex: Male
  Weight: 119 kg

DRUGS (2)
  1. HEPARIN SODIUM INJECTION [Suspect]
  2. HEPARIN SODIUM [Suspect]

REACTIONS (2)
  - Drug effect decreased [None]
  - Product quality issue [None]
